FAERS Safety Report 20912022 (Version 1)
Quarter: 2022Q2

REPORT INFORMATION
  Report Type: Report from Study
  Country: ES (occurrence: ES)
  Receive Date: 20220603
  Receipt Date: 20220603
  Transmission Date: 20220721
  Serious: Yes (Hospitalization)
  Sender: FDA-Public Use
  Company Number: None

PATIENT
  Age: 79 Year
  Sex: Male

DRUGS (13)
  1. SORAFENIB [Suspect]
     Active Substance: SORAFENIB
     Indication: Hepatic cancer
     Dosage: SORAFENIB (8044A) , UNIT DOSE : 400 MG , FREQUENCY TIME : 12 HOURS , DURATION : 18 DAYS
     Route: 048
     Dates: start: 20220412, end: 20220429
  2. GLICLAZIDA STADA [Concomitant]
     Dosage: 60 TABLETS (TRANSPARENT PVC/ALU BLISTER) , STRENGTH : 30 MG , UNIT DOSE : 30 MG , FREQUENCY TIME : 1
     Route: 048
     Dates: start: 20220304
  3. SYNJARDY [Concomitant]
     Active Substance: EMPAGLIFLOZIN\METFORMIN HYDROCHLORIDE
     Dosage: 60 TABLETS , STRENGTH : 5 MG/1000 MG  , UNIT DOSE : 1 DF , FREQUENCY TIME : 12 HOURS
     Route: 048
     Dates: start: 20210923
  4. DIGOXINA TEOFARMA [Concomitant]
     Dosage: UNIT DOSE : 1.25 MG , FREQUENCY TIME : 1 WEEK, STRENGTH : 0.25 MG , 50 TABLETS
     Route: 048
     Dates: start: 20211026
  5. GLYCOPYRROLATE [Concomitant]
     Active Substance: GLYCOPYRROLATE
     Dosage: 5 BLISTERS OF 6 CAPSULES (PACK OF 30 CAPSULES) , STRENGTH : 44 MCG , UNIT DOSE : 44 MCG , FREQUENCY
     Route: 055
     Dates: start: 20211119
  6. OMEPRAZOL RATIO [Concomitant]
     Dosage: 28 CAPSULES , UNIT DOSE : 20 MG , STRENGTH : 20 MG , FREQUENCY TIME : 1 DAY , OMEPRAZOL RATIO 20 MG
     Route: 048
     Dates: start: 20120329
  7. ENALAPRIL\HYDROCHLOROTHIAZIDE [Concomitant]
     Active Substance: ENALAPRIL\HYDROCHLOROTHIAZIDE
     Dosage: UNIT DOSE : 1 DF , FREQUENCY TIME : 1 DAY , ENALAPRIL + HIDROCLOROTIAZIDA
     Route: 048
  8. FUROSEMIDE [Concomitant]
     Active Substance: FUROSEMIDE
     Dosage: UNIT DOSE : 40 MG , STRENGTH : 40 MG , 30 TABLETS
     Route: 048
     Dates: start: 20210923
  9. DILTIAZEM HYDROCHLORIDE [Concomitant]
     Active Substance: DILTIAZEM HYDROCHLORIDE
     Dosage: 28 CAPSULES , STRENGTH : 300 MG , UNIT DOSE : 300 MG , FREQUENCY TIME : 1 DAY
     Route: 048
     Dates: start: 20160125
  10. EZETIMIBE [Concomitant]
     Active Substance: EZETIMIBE
     Dosage: 28 TABLETS , UNIT DOSE : 10 MG , STRENGTH : 10 MG , FREQUENCY TIME : 1 DAY
     Route: 048
  11. FERROUS SULFATE [Concomitant]
     Active Substance: FERROUS SULFATE
     Dosage: 30 TABLETS , FREQUENCY TIME : 1 DAY , STRENGTH : 105 MG
     Route: 048
  12. ENOXAPARIN SODIUM [Concomitant]
     Active Substance: ENOXAPARIN SODIUM
     Dosage: UNIT DOSE : 80 MG  , FREQUENCY TIME : 1 DAY , 30 PRE-FILLED SYRINGES OF 0.8 ML , CLEXANE 8.000 UI (8
     Route: 058
     Dates: start: 20220225
  13. LANTUS [Concomitant]
     Active Substance: INSULIN GLARGINE
     Dosage: STRENGTH : 100 UNITS/ML  , UNIT DOSE : 40 IU, 4 CARTRIDGES OF 3 ML , FREQUENCY TIME : 1 DAY
     Route: 058

REACTIONS (1)
  - Cardiac failure congestive [Recovered/Resolved]

NARRATIVE: CASE EVENT DATE: 20220429
